FAERS Safety Report 19962000 (Version 1)
Quarter: 2021Q4

REPORT INFORMATION
  Report Type: Spontaneous
  Country: IN (occurrence: IN)
  Receive Date: 20211018
  Receipt Date: 20211018
  Transmission Date: 20220303
  Serious: Yes (Other)
  Sender: FDA-Public Use
  Company Number: IN-CIPLA LTD.-2021IN06842

PATIENT

DRUGS (1)
  1. OLANZAPINE [Suspect]
     Active Substance: OLANZAPINE
     Indication: Product used for unknown indication
     Dosage: 10 MILLIGRAM, PER DAY
     Route: 065

REACTIONS (3)
  - Cognitive disorder [Recovered/Resolved]
  - Choreoathetosis [Recovered/Resolved]
  - Dystonia [Recovered/Resolved]
